FAERS Safety Report 24527214 (Version 1)
Quarter: 2024Q4

REPORT INFORMATION
  Report Type: Spontaneous
  Country: IT (occurrence: IT)
  Receive Date: 20241021
  Receipt Date: 20241021
  Transmission Date: 20250115
  Serious: Yes (Hospitalization, Other)
  Sender: AUROBINDO
  Company Number: IT-002147023-NVSC2023IT022818

PATIENT
  Age: 62 Year
  Sex: Female
  Weight: 54 kg

DRUGS (8)
  1. IRINOTECAN [Suspect]
     Active Substance: IRINOTECAN
     Indication: Colorectal cancer metastatic
     Dosage: 270 MILLIGRAM, Q2W
     Route: 042
     Dates: start: 20230104, end: 20230907
  2. IRINOTECAN [Suspect]
     Active Substance: IRINOTECAN
     Dosage: 270 MILLIGRAM, Q2W
     Route: 042
     Dates: start: 20230207
  3. FLUOROURACIL [Suspect]
     Active Substance: FLUOROURACIL
     Indication: Colorectal cancer metastatic
     Dosage: 2100 MILLIGRAM
     Route: 042
     Dates: start: 20230104
  4. FLUOROURACIL [Suspect]
     Active Substance: FLUOROURACIL
     Dosage: 3600 MILLIGRAM
     Route: 042
     Dates: start: 20230104
  5. FLUOROURACIL [Suspect]
     Active Substance: FLUOROURACIL
     Dosage: 3600 MILLIGRAM, Q2W
     Route: 042
     Dates: start: 20230104, end: 20230909
  6. FLUOROURACIL [Suspect]
     Active Substance: FLUOROURACIL
     Dosage: 600 MILLIGRAM, Q2W
     Route: 042
     Dates: start: 20230104, end: 20230907
  7. FLUOROURACIL [Suspect]
     Active Substance: FLUOROURACIL
     Dosage: 3600 MILLIGRAM, Q2W
     Route: 042
     Dates: start: 20230207
  8. FLUOROURACIL [Suspect]
     Active Substance: FLUOROURACIL
     Dosage: 600 MILLIGRAM, Q2W
     Route: 042
     Dates: start: 20230207

REACTIONS (2)
  - Neutropenia [Recovered/Resolved]
  - Chest pain [Recovered/Resolved]

NARRATIVE: CASE EVENT DATE: 20230201
